FAERS Safety Report 9958493 (Version 2)
Quarter: 2014Q1

REPORT INFORMATION
  Report Type: Spontaneous
  Country: US (occurrence: US)
  Receive Date: 20140305
  Receipt Date: 20140311
  Transmission Date: 20141002
  Serious: Yes (Other)
  Sender: FDA-Public Use
  Company Number: US-DRREDDYS-USA/USA/14/0038583

PATIENT
  Age: 16 Year
  Sex: Male

DRUGS (1)
  1. ZENATANE [Suspect]
     Indication: ACNE
     Route: 065
     Dates: start: 20140117

REACTIONS (1)
  - Mood altered [Recovered/Resolved]
